FAERS Safety Report 16176597 (Version 1)
Quarter: 2019Q2

REPORT INFORMATION
  Report Type: Spontaneous
  Country: FR (occurrence: FR)
  Receive Date: 20190409
  Receipt Date: 20190409
  Transmission Date: 20190711
  Serious: Yes (Hospitalization)
  Sender: FDA-Public Use
  Company Number: FR-PFIZER INC-2019148171

PATIENT
  Age: 37 Year
  Sex: Female

DRUGS (1)
  1. PRODILANTIN [Suspect]
     Active Substance: FOSPHENYTOIN SODIUM
     Route: 042
     Dates: start: 20190219

REACTIONS (3)
  - Status epilepticus [Not Recovered/Not Resolved]
  - Nervous system disorder [Not Recovered/Not Resolved]
  - Mydriasis [Not Recovered/Not Resolved]

NARRATIVE: CASE EVENT DATE: 20190222
